FAERS Safety Report 5951226-7 (Version None)
Quarter: 2008Q4

REPORT INFORMATION
  Report Type: 
  Country: None (occurrence: None)
  Receive Date: 20081111
  Receipt Date: 20081111
  Transmission Date: 20090506
  Serious: Yes (Death)
  Sender: FDA-Public Use
  Company Number: None

PATIENT
  Age: 53 Year
  Sex: Male
  Weight: 83.9154 kg

DRUGS (1)
  1. AMINOPYRIDINE [Suspect]
     Indication: MULTIPLE SCLEROSIS
     Dosage: 10MG 4X DAY PO
     Route: 048
     Dates: start: 20081002, end: 20081002

REACTIONS (1)
  - CONVULSION [None]
